FAERS Safety Report 8214917-3 (Version None)
Quarter: 2012Q1

REPORT INFORMATION
  Report Type: 
  Country: None (occurrence: None)
  Receive Date: 20120316
  Receipt Date: 20120309
  Transmission Date: 20120608
  Serious: Yes (Other)
  Sender: FDA-Public Use
  Company Number: CA-UCBSA-045426

PATIENT
  Age: 53 Year
  Sex: Female
  Weight: 59.8 kg

DRUGS (8)
  1. PLAQUENIL [Concomitant]
     Indication: RHEUMATOID ARTHRITIS
     Route: 048
     Dates: start: 20110401
  2. CIMZIA [Suspect]
     Route: 058
     Dates: start: 20111121
  3. FOLIC ACID [Concomitant]
     Route: 048
     Dates: start: 20110707
  4. VOLTAREN [Concomitant]
     Indication: RHEUMATOID ARTHRITIS
     Dosage: 75 SR MG
     Route: 048
  5. FERROUS SULFATE TAB [Concomitant]
     Indication: ANAEMIA
     Route: 048
  6. METHOTREXATE [Concomitant]
     Indication: RHEUMATOID ARTHRITIS
     Dosage: WEEKLY
     Route: 058
     Dates: start: 20110707
  7. CIMZIA [Suspect]
     Indication: RHEUMATOID ARTHRITIS
     Route: 058
     Dates: start: 20111006, end: 20111120
  8. CALCIUM-VIT D [Concomitant]
     Dosage: 500-400 MG-U.I.
     Route: 048
     Dates: start: 20110910

REACTIONS (4)
  - HERPES ZOSTER [None]
  - DIARRHOEA [None]
  - CONDITION AGGRAVATED [None]
  - PYREXIA [None]
